FAERS Safety Report 25393687 (Version 3)
Quarter: 2025Q3

REPORT INFORMATION
  Report Type: Spontaneous
  Country: US (occurrence: US)
  Receive Date: 20250604
  Receipt Date: 20250721
  Transmission Date: 20251020
  Serious: No
  Sender: GRAVITI PHARMACEUTICALS PRIVATE LIMITED
  Company Number: US-GRAVITIPHARMA-GRA-2505-US-SPO-0277

PATIENT

DRUGS (1)
  1. HYDROXYZINE HYDROCHLORIDE [Suspect]
     Active Substance: HYDROXYZINE HYDROCHLORIDE
     Indication: Product used for unknown indication
     Dosage: THREE TABLETS HAVE BEEN CONSUMED
     Route: 048
     Dates: start: 2025

REACTIONS (2)
  - Product odour abnormal [Unknown]
  - No adverse event [Unknown]
